FAERS Safety Report 7982922-8 (Version None)
Quarter: 2011Q4

REPORT INFORMATION
  Report Type: 
  Country: None (occurrence: None)
  Receive Date: 20111215
  Receipt Date: 20111208
  Transmission Date: 20120403
  Serious: Yes (Other)
  Sender: FDA-Public Use
  Company Number: PHHY2011US107167

PATIENT
  Age: 20 Year
  Sex: Female

DRUGS (3)
  1. ALBUTEROL SULFATE AUTOHALER [Suspect]
     Dosage: 2.5 MG, UNK
  2. ALBUTEROL SULFATE AUTOHALER [Suspect]
     Dosage: UNK
  3. PREDNISONE [Concomitant]
     Dosage: UNK

REACTIONS (6)
  - TACHYPNOEA [None]
  - LACTIC ACIDOSIS [None]
  - DYSPNOEA [None]
  - DISCOMFORT [None]
  - HYPERLACTACIDAEMIA [None]
  - TACHYCARDIA [None]
